FAERS Safety Report 24618707 (Version 1)
Quarter: 2024Q4

REPORT INFORMATION
  Report Type: Spontaneous
  Country: US (occurrence: None)
  Receive Date: 20241113
  Receipt Date: 20241113
  Transmission Date: 20250114
  Serious: Yes (Other)
  Sender: Public
  Company Number: None

PATIENT
  Age: 65 Year
  Sex: Male

DRUGS (1)
  1. ERIVEDGE [Suspect]
     Active Substance: VISMODEGIB
     Dates: start: 20241028, end: 20241113

REACTIONS (4)
  - Nausea [None]
  - Skin reaction [None]
  - Genital tract inflammation [None]
  - Feeling abnormal [None]

NARRATIVE: CASE EVENT DATE: 20241104
